FAERS Safety Report 20393065 (Version 2)
Quarter: 2022Q3

REPORT INFORMATION
  Report Type: Spontaneous
  Country: US (occurrence: None)
  Receive Date: 20220128
  Receipt Date: 20220822
  Transmission Date: 20221027
  Serious: Yes (Death, Other)
  Sender: FDA-Public Use
  Company Number: 2022A038766

PATIENT
  Age: 46 Year
  Sex: Female

DRUGS (70)
  1. NEXIUM [Suspect]
     Active Substance: ESOMEPRAZOLE MAGNESIUM
     Indication: Gastrooesophageal reflux disease
     Route: 048
     Dates: start: 2007, end: 2016
  2. NEXIUM [Suspect]
     Active Substance: ESOMEPRAZOLE MAGNESIUM
     Indication: Gastrooesophageal reflux disease
     Route: 048
     Dates: start: 2007, end: 2016
  3. OMEPRAZOLE [Suspect]
     Active Substance: OMEPRAZOLE
     Indication: Gastrooesophageal reflux disease
     Dosage: GENERIC
     Route: 065
     Dates: start: 2008
  4. OMEPRAZOLE [Suspect]
     Active Substance: OMEPRAZOLE
     Indication: Gastrooesophageal reflux disease
     Dosage: GENERIC
     Route: 065
     Dates: start: 2008
  5. OMEPRAZOLE [Suspect]
     Active Substance: OMEPRAZOLE
     Indication: Gastrooesophageal reflux disease
     Dosage: GENERIC
     Route: 065
     Dates: start: 2016
  6. OMEPRAZOLE [Suspect]
     Active Substance: OMEPRAZOLE
     Indication: Gastrooesophageal reflux disease
     Dosage: GENERIC
     Route: 065
     Dates: start: 2016
  7. PANTOPRAZOLE [Suspect]
     Active Substance: PANTOPRAZOLE
     Indication: Gastrooesophageal reflux disease
     Dosage: GENERIC
     Route: 065
     Dates: start: 2016
  8. PANTOPRAZOLE [Suspect]
     Active Substance: PANTOPRAZOLE
     Indication: Gastrooesophageal reflux disease
     Dosage: GENERIC
     Route: 065
     Dates: start: 2016
  9. ACETAMINOPHEN\HYDROCODONE BITARTRATE [Concomitant]
     Active Substance: ACETAMINOPHEN\HYDROCODONE BITARTRATE
  10. ESTRADIOL [Concomitant]
     Active Substance: ESTRADIOL
  11. COMBIVENT [Concomitant]
     Active Substance: ALBUTEROL SULFATE\IPRATROPIUM BROMIDE
  12. LYRICA [Concomitant]
     Active Substance: PREGABALIN
  13. SINGULAIR [Concomitant]
     Active Substance: MONTELUKAST SODIUM
  14. CYCLOBENZAPRINE [Concomitant]
     Active Substance: CYCLOBENZAPRINE
  15. TIZANIDINE HYDROCHLORIDE [Concomitant]
     Active Substance: TIZANIDINE HYDROCHLORIDE
  16. GLIPIZIDE [Concomitant]
     Active Substance: GLIPIZIDE
  17. METFORMIN [Concomitant]
     Active Substance: METFORMIN HYDROCHLORIDE
  18. THIAMINE/SODIUM PHOSPHATE MONOBASIC (ANHYDROUS)/PYRIDOXINE [Concomitant]
  19. TORSEMIDE [Concomitant]
     Active Substance: TORSEMIDE
  20. LEVAQUIN [Concomitant]
     Active Substance: LEVOFLOXACIN
  21. ADVAIR DISKUS [Concomitant]
     Active Substance: FLUTICASONE PROPIONATE\SALMETEROL XINAFOATE
  22. PROMETHAZINE [Concomitant]
     Active Substance: PROMETHAZINE HYDROCHLORIDE
  23. CEPHALEXIN [Concomitant]
     Active Substance: CEPHALEXIN
  24. CLARITHROMYCIN [Concomitant]
     Active Substance: CLARITHROMYCIN
  25. BYETTA [Concomitant]
     Active Substance: EXENATIDE
  26. GEMFIBROZIL [Concomitant]
     Active Substance: GEMFIBROZIL
  27. ACETAMINOPHEN\CODEINE PHOSPHATE [Concomitant]
     Active Substance: ACETAMINOPHEN\CODEINE PHOSPHATE
  28. LIDODERM [Concomitant]
     Active Substance: LIDOCAINE
  29. GUAIFENESIN\PHENYLEPHRINE\PHENYLPROPANOLAMINE [Concomitant]
     Active Substance: GUAIFENESIN\PHENYLEPHRINE\PHENYLPROPANOLAMINE
  30. ACETAMINOPHEN\PROPOXYPHENE HYDROCHLORIDE [Concomitant]
     Active Substance: ACETAMINOPHEN\PROPOXYPHENE HYDROCHLORIDE
  31. AVELOX [Concomitant]
     Active Substance: MOXIFLOXACIN HYDROCHLORIDE
  32. NIASPAN [Concomitant]
     Active Substance: NIACIN
  33. CHANTIX [Concomitant]
     Active Substance: VARENICLINE TARTRATE
  34. LORAZEPAM [Concomitant]
     Active Substance: LORAZEPAM
  35. PREDNISONE [Concomitant]
     Active Substance: PREDNISONE
  36. ALPRAZOLAM [Concomitant]
     Active Substance: ALPRAZOLAM
  37. METOCLOPRAMIDE [Concomitant]
     Active Substance: METOCLOPRAMIDE
  38. CLONIDINE [Concomitant]
     Active Substance: CLONIDINE
  39. HYDRALAZINE [Concomitant]
     Active Substance: HYDRALAZINE HYDROCHLORIDE
  40. HUMULIN NOS [Concomitant]
     Active Substance: INSULIN HUMAN
  41. SENNA [Concomitant]
     Active Substance: SENNA LEAF\SENNOSIDES\SENNOSIDES A AND B
  42. COLESTIPOL [Concomitant]
     Active Substance: COLESTIPOL
  43. ACETAMINOPHEN\OXYCODONE HYDROCHLORIDE [Concomitant]
     Active Substance: ACETAMINOPHEN\OXYCODONE HYDROCHLORIDE
  44. AMOX TR-K CLAV [Concomitant]
  45. CARISOPRODOL [Concomitant]
     Active Substance: CARISOPRODOL
  46. FENTANYL [Concomitant]
     Active Substance: FENTANYL
  47. PLAVIX [Concomitant]
     Active Substance: CLOPIDOGREL BISULFATE
  48. METHYLPREDNISOLONE [Concomitant]
     Active Substance: METHYLPREDNISOLONE
  49. SULFAMETHOXAZOLE\TRIMETHOPRIM [Concomitant]
     Active Substance: SULFAMETHOXAZOLE\TRIMETHOPRIM
  50. Q-TUSSIN-DM [Concomitant]
  51. BUSPIRONE [Concomitant]
     Active Substance: BUSPIRONE HYDROCHLORIDE
  52. POTASSIUM CHLORIDE [Concomitant]
     Active Substance: POTASSIUM CHLORIDE
  53. SODIUM CHLORIDE [Concomitant]
     Active Substance: SODIUM CHLORIDE
  54. FERROUS SULFATE [Concomitant]
     Active Substance: FERROUS SULFATE
  55. SPIRONOLACTONE [Concomitant]
     Active Substance: SPIRONOLACTONE
  56. NOVOLOG [Concomitant]
     Active Substance: INSULIN ASPART
  57. IPRATROPIUM [Concomitant]
     Active Substance: IPRATROPIUM
  58. BENZAONATATE [Concomitant]
  59. VOLTAREN [Concomitant]
     Active Substance: DICLOFENAC SODIUM
  60. RESTASIS [Concomitant]
     Active Substance: CYCLOSPORINE
  61. CEFDINIR [Concomitant]
     Active Substance: CEFDINIR
  62. ALMACONE [Concomitant]
     Active Substance: ALUMINUM HYDROXIDE\DIMETHICONE\MAGNESIUM HYDROXIDE
  63. JANUVIA [Concomitant]
     Active Substance: SITAGLIPTIN PHOSPHATE
  64. VITAMIN D [Concomitant]
     Active Substance: VITAMIN D NOS
  65. MECLIZINE [Concomitant]
     Active Substance: MECLIZINE HYDROCHLORIDE
  66. KETOROLAC [Concomitant]
     Active Substance: KETOROLAC TROMETHAMINE
  67. SODIUM PHOSPHATE [Concomitant]
     Active Substance: SODIUM PHOSPHATE
  68. SERTRALINE [Concomitant]
     Active Substance: SERTRALINE HYDROCHLORIDE
  69. ROCEPHIN [Concomitant]
     Active Substance: CEFTRIAXONE SODIUM
  70. FISH OIL [Concomitant]
     Active Substance: FISH OIL

REACTIONS (4)
  - Death [Fatal]
  - Acute kidney injury [Unknown]
  - Chronic kidney disease [Unknown]
  - Renal failure [Unknown]

NARRATIVE: CASE EVENT DATE: 20120101
